FAERS Safety Report 8322651-4 (Version None)
Quarter: 2012Q2

REPORT INFORMATION
  Report Type: 
  Country: None (occurrence: None)
  Receive Date: 20120430
  Receipt Date: 20120426
  Transmission Date: 20120825
  Serious: Yes (Disabling)
  Sender: FDA-Public Use
  Company Number: US-MERCK-1110USA02012

PATIENT
  Age: 51 Year
  Sex: Female

DRUGS (2)
  1. FOSAMAX [Suspect]
     Indication: OSTEOPOROSIS PROPHYLAXIS
     Route: 048
     Dates: start: 19980501, end: 20090801
  2. FOSAMAX [Suspect]
     Route: 048
     Dates: start: 19980501, end: 20090801

REACTIONS (5)
  - COMPLEX REGIONAL PAIN SYNDROME [None]
  - BLOOD CHOLESTEROL INCREASED [None]
  - FEMUR FRACTURE [None]
  - LIMB INJURY [None]
  - HYPERTENSION [None]
